FAERS Safety Report 8773580 (Version 1)
Quarter: 2012Q4

REPORT INFORMATION
  Report Type: 
  Country: AU (occurrence: AU)
  Receive Date: 20120907
  Receipt Date: 20120907
  Transmission Date: 20130627
  Serious: Yes (Death)
  Sender: FDA-Public Use
  Company Number: PHHY2012AU077354

PATIENT

DRUGS (1)
  1. TEGRETOL CR [Suspect]
     Indication: EPILEPSY
     Dosage: 400 mg, daily

REACTIONS (1)
  - Sudden unexplained death in epilepsy [Fatal]
